FAERS Safety Report 5757103-9 (Version None)
Quarter: 2008Q2

REPORT INFORMATION
  Report Type: 
  Country: None (occurrence: None)
  Receive Date: 20080603
  Receipt Date: 20080526
  Transmission Date: 20081010
  Serious: Yes (Hospitalization)
  Sender: FDA-Public Use
  Company Number: FR-ASTRAZENECA-2008CG00787

PATIENT
  Age: 24952 Day
  Sex: Male

DRUGS (9)
  1. NEXIUM [Suspect]
     Route: 048
     Dates: start: 20080409, end: 20080425
  2. PREVISCAN [Suspect]
     Route: 048
     Dates: start: 20080201, end: 20080201
  3. PREVISCAN [Suspect]
     Dosage: 10 TO 15 MG DAILY
     Route: 048
     Dates: start: 20080409, end: 20080425
  4. TAVANIC [Suspect]
     Route: 048
     Dates: start: 20080408, end: 20080425
  5. ALLOPURINOL [Concomitant]
  6. TAHOR [Concomitant]
  7. CORVASAL [Concomitant]
  8. PERINDOPRIL ERBUMINE [Concomitant]
  9. LASILIX [Concomitant]

REACTIONS (1)
  - VASCULAR PURPURA [None]
